FAERS Safety Report 24328456 (Version 5)
Quarter: 2024Q4

REPORT INFORMATION
  Report Type: Spontaneous
  Country: ES (occurrence: ES)
  Receive Date: 20240917
  Receipt Date: 20241009
  Transmission Date: 20250115
  Serious: Yes (Life-Threatening, Hospitalization, Other)
  Sender: MERCK
  Company Number: ES-009507513-2409ESP003768

PATIENT
  Age: 75 Year
  Sex: Female

DRUGS (3)
  1. PEMBROLIZUMAB [Suspect]
     Active Substance: PEMBROLIZUMAB
     Indication: Acral lentiginous melanoma
     Dosage: 2 MILLIGRAM/KILOGRAM (116MG), Q3W
     Route: 051
     Dates: start: 20221208, end: 20231020
  2. TELMISARTAN [Concomitant]
     Active Substance: TELMISARTAN
     Indication: Hypertension
     Dosage: 40 MILLIGRAM, QD
     Route: 048
  3. ESOMEPRAZOLE [Concomitant]
     Active Substance: ESOMEPRAZOLE
     Indication: Gastrooesophageal reflux disease
     Dosage: 20 MILLIGRAM, QD
     Route: 048

REACTIONS (6)
  - Status epilepticus [Recovered/Resolved with Sequelae]
  - Encephalitis autoimmune [Recovered/Resolved with Sequelae]
  - Immune-mediated lung disease [Recovered/Resolved]
  - Immune-mediated arthritis [Unknown]
  - Malignant neoplasm progression [Unknown]
  - Acral lentiginous melanoma [Unknown]

NARRATIVE: CASE EVENT DATE: 20230101
